FAERS Safety Report 10170546 (Version 1)
Quarter: 2014Q2

REPORT INFORMATION
  Report Type: Spontaneous
  Country: GB (occurrence: GB)
  Receive Date: 20140513
  Receipt Date: 20140513
  Transmission Date: 20141212
  Serious: Yes (Other)
  Sender: FDA-Public Use
  Company Number: PHFR2014GB003417

PATIENT
  Age: 2 Year
  Sex: 0

DRUGS (1)
  1. CARBAMAZEPINE [Suspect]
     Dosage: UNK UKN, UNK
     Route: 048

REACTIONS (3)
  - Convulsion [Unknown]
  - Expired product administered [Unknown]
  - Drug ineffective [Unknown]
